FAERS Safety Report 21564770 (Version 2)
Quarter: 2024Q4

REPORT INFORMATION
  Report Type: Spontaneous
  Country: US (occurrence: US)
  Receive Date: 20221108
  Receipt Date: 20241027
  Transmission Date: 20250115
  Serious: Yes (Life-Threatening, Hospitalization, Other)
  Sender: SANOFI AVENTIS
  Company Number: US-MLMSERVICE-20221018-3868257-1

PATIENT
  Age: 15 Year
  Sex: Male

DRUGS (2)
  1. IBUPROFEN [Suspect]
     Active Substance: IBUPROFEN
     Indication: Suicide attempt
     Dosage: 300 DF, TOTAL, (400 MG TABS; 120 G O6 1666 MG/KG )
     Route: 048
  2. DIPHENHYDRAMINE HYDROCHLORIDE [Suspect]
     Active Substance: DIPHENHYDRAMINE HYDROCHLORIDE
     Indication: Suicide attempt
     Dosage: 15 DF, TOTAL
     Route: 048

REACTIONS (14)
  - Multiple organ dysfunction syndrome [Recovered/Resolved]
  - Intentional overdose [Recovered/Resolved]
  - Toxicity to various agents [Recovered/Resolved]
  - Cardiac arrest [Recovered/Resolved]
  - Nodal rhythm [Recovered/Resolved]
  - Pneumonia necrotising [Recovered/Resolved]
  - Deep vein thrombosis [Recovered/Resolved]
  - Shock [Recovered/Resolved]
  - Coma [Recovered/Resolved]
  - Hypoglycaemia [Recovered/Resolved]
  - Acute kidney injury [Recovered/Resolved]
  - Metabolic acidosis [Recovered/Resolved]
  - Lactic acidosis [Recovered/Resolved]
  - Cerebral haemorrhage [Recovered/Resolved]
